FAERS Safety Report 6129600-8 (Version None)
Quarter: 2009Q1

REPORT INFORMATION
  Report Type: 
  Country: None (occurrence: None)
  Receive Date: 20090323
  Receipt Date: 20090323
  Transmission Date: 20090719
  Serious: Yes (Other)
  Sender: FDA-Public Use
  Company Number: None

PATIENT
  Age: 48 Year
  Sex: Female
  Weight: 53.978 kg

DRUGS (1)
  1. BONIVA [Suspect]
     Indication: OSTEOPENIA
     Dates: start: 20090308, end: 20090308

REACTIONS (4)
  - ABDOMINAL PAIN UPPER [None]
  - COGNITIVE DISORDER [None]
  - MYALGIA [None]
  - VERTIGO [None]
